FAERS Safety Report 7142778-2 (Version None)
Quarter: 2010Q4

REPORT INFORMATION
  Report Type: 
  Country: None (occurrence: None)
  Receive Date: 20101207
  Receipt Date: 20101206
  Transmission Date: 20110411
  Serious: Yes (Other)
  Sender: FDA-Public Use
  Company Number: DE-MERCK-1007DEU00104

PATIENT
  Age: 14 Year
  Sex: Male
  Weight: 47 kg

DRUGS (4)
  1. SINGULAIR [Suspect]
     Indication: SEASONAL ALLERGY
     Route: 048
     Dates: end: 20100101
  2. SINGULAIR [Suspect]
     Route: 048
     Dates: start: 20100101
  3. SINGULAIR [Suspect]
     Route: 048
     Dates: end: 20100101
  4. SINGULAIR [Suspect]
     Route: 048
     Dates: start: 20100101

REACTIONS (5)
  - AVULSION FRACTURE [None]
  - COELIAC DISEASE [None]
  - HYPOCHROMIC ANAEMIA [None]
  - OVERDOSE [None]
  - TESTICULAR HYPERTROPHY [None]
